FAERS Safety Report 14277260 (Version 1)
Quarter: 2017Q4

REPORT INFORMATION
  Report Type: Spontaneous
  Country: US (occurrence: US)
  Receive Date: 20171212
  Receipt Date: 20171212
  Transmission Date: 20180321
  Serious: Yes (Other)
  Sender: FDA-Public Use
  Company Number: US-PFIZER INC-2017525932

PATIENT
  Age: 25 Year
  Sex: Male

DRUGS (2)
  1. LAMICTAL [Concomitant]
     Active Substance: LAMOTRIGINE
  2. NEURONTIN [Suspect]
     Active Substance: GABAPENTIN
     Indication: SEIZURE
     Dosage: 5400 MG, 1X/DAY (TAKES 9 TABLETS/DAY OF THE 600 MG)

REACTIONS (3)
  - Glioma [Unknown]
  - Overdose [Unknown]
  - Drug ineffective [Unknown]
